FAERS Safety Report 6612661-7 (Version None)
Quarter: 2010Q1

REPORT INFORMATION
  Report Type: 
  Country: None (occurrence: None)
  Receive Date: 20100223
  Receipt Date: 20100210
  Transmission Date: 20100710
  Serious: Yes (Other)
  Sender: FDA-Public Use
  Company Number: AU-1180817

PATIENT
  Age: 12 Year
  Sex: Female

DRUGS (1)
  1. MAXIDEX [Suspect]
     Indication: EYE DISORDER
     Dosage: OPHTHALMIC
     Route: 047

REACTIONS (1)
  - EYE DISORDER [None]
